FAERS Safety Report 10465270 (Version 2)
Quarter: 2014Q3

REPORT INFORMATION
  Report Type: Report from Study
  Country: US (occurrence: US)
  Receive Date: 20140919
  Receipt Date: 20140919
  Transmission Date: 20150326
  Serious: Yes (Other)
  Sender: FDA-Public Use
  Company Number: US-ALEXION PHARMACEUTICALS INC.-A201002293

PATIENT
  Sex: Male

DRUGS (1)
  1. SOLIRIS [Suspect]
     Active Substance: ECULIZUMAB
     Indication: PAROXYSMAL NOCTURNAL HAEMOGLOBINURIA
     Dosage: UNK
     Route: 042

REACTIONS (9)
  - Quality of life decreased [Unknown]
  - Condition aggravated [Unknown]
  - Lipoma [Recovered/Resolved]
  - Hyperphagia [Unknown]
  - Renal failure acute [Unknown]
  - Haemoglobinuria [Unknown]
  - Stress [Unknown]
  - Lower extremity mass [Recovered/Resolved]
  - Fatigue [Unknown]
